FAERS Safety Report 8538495-4 (Version None)
Quarter: 2012Q3

REPORT INFORMATION
  Report Type: 
  Country: None (occurrence: None)
  Receive Date: 20120718
  Receipt Date: 20120718
  Transmission Date: 20120928
  Serious: Yes (Hospitalization)
  Sender: FDA-Public Use
  Company Number: None

PATIENT
  Sex: Female

DRUGS (2)
  1. LEVOTHYROXINE SODIUM [Suspect]
     Indication: THYROID DISORDER
     Dosage: 25MG 1 DAILY MOUTH
     Route: 048
     Dates: start: 20120516, end: 20120614
  2. LEVOTHYROXINE SODIUM [Suspect]
     Indication: THYROID DISORDER
     Dosage: 37 1/2 MG 1 DAILY MOUTH
     Route: 048
     Dates: start: 20120615, end: 20120619

REACTIONS (4)
  - CHRONIC OBSTRUCTIVE PULMONARY DISEASE [None]
  - TREMOR [None]
  - DYSPNOEA [None]
  - HEADACHE [None]
